FAERS Safety Report 17481406 (Version 1)
Quarter: 2020Q1

REPORT INFORMATION
  Report Type: Other
  Country: GB (occurrence: GB)
  Receive Date: 20200302
  Receipt Date: 20200302
  Transmission Date: 20200409
  Serious: Yes (Other)
  Sender: FDA-Public Use
  Company Number: GB-HEALTHCARE PHARMACEUTICALS LTD.-2081150

PATIENT

DRUGS (2)
  1. DOXORUBICIN HYDROCHLORIDE. [Suspect]
     Active Substance: DOXORUBICIN HYDROCHLORIDE
     Indication: SARCOMA
     Route: 065
  2. CAELYX [Suspect]
     Active Substance: DOXORUBICIN HYDROCHLORIDE
     Route: 065

REACTIONS (5)
  - Nausea [Unknown]
  - Febrile neutropenia [Unknown]
  - Toxicity to various agents [Unknown]
  - Sarcoma [Not Recovered/Not Resolved]
  - Disease progression [Not Recovered/Not Resolved]
